FAERS Safety Report 24665280 (Version 3)
Quarter: 2024Q4

REPORT INFORMATION
  Report Type: Spontaneous
  Country: NL (occurrence: NL)
  Receive Date: 20241126
  Receipt Date: 20241225
  Transmission Date: 20250114
  Serious: Yes (Death, Life-Threatening, Hospitalization)
  Sender: ACCORD
  Company Number: NL-Accord-456831

PATIENT
  Age: 63 Year
  Sex: Female
  Weight: 54.9 kg

DRUGS (22)
  1. CISPLATIN [Suspect]
     Active Substance: CISPLATIN
     Indication: Small cell lung cancer limited stage
     Dosage: 75 MILLIGRAM/SQ. METER, Q3W, IV DRIP
     Route: 042
     Dates: start: 20240610, end: 20240819
  2. ETOPOSIDE [Suspect]
     Active Substance: ETOPOSIDE
     Indication: Small cell lung cancer limited stage
     Dosage: 100 MILLIGRAM/SQ. METER, Q3W; IV DRIP
     Route: 042
     Dates: start: 20240610, end: 20240821
  3. PANTOPRAZOLE [Concomitant]
     Active Substance: PANTOPRAZOLE
     Indication: Gastric ulcer
     Dosage: 40 MG, ONCE A DAY (QD)
     Route: 048
     Dates: start: 20240705
  4. LEVOTHYROXINE SODIUM [Concomitant]
     Active Substance: LEVOTHYROXINE SODIUM
     Indication: Hypothyroidism
     Dosage: 75MCG, QD
     Route: 048
     Dates: start: 20240430
  5. ROSUVASTATIN [Concomitant]
     Active Substance: ROSUVASTATIN
     Indication: Hypercholesterolaemia
     Dosage: 40 MG, QD
     Route: 048
     Dates: start: 20240430
  6. METFORMIN [Concomitant]
     Active Substance: METFORMIN HYDROCHLORIDE
     Indication: Type 2 diabetes mellitus
     Dosage: 500 MG, ORAL, QD
     Route: 048
     Dates: start: 20240507
  7. POLYETHYLENE GLYCOLS [Concomitant]
     Active Substance: POLYETHYLENE GLYCOLS
     Indication: Constipation prophylaxis
     Dosage: 1 SACHET, ORAL, AS NEEDED (PRN
     Route: 048
     Dates: start: 20240610
  8. COSMETICS [Concomitant]
     Active Substance: COSMETICS
     Indication: Radiation injury
     Dosage: UNK, PRN
     Route: 061
     Dates: start: 20240731
  9. FLAMIGEL [Concomitant]
     Indication: Radiation injury
     Dosage: UNK, PRN
     Route: 061
     Dates: start: 20240731
  10. EUTHYROX [Concomitant]
     Active Substance: LEVOTHYROXINE SODIUM
     Indication: Hypothyroidism
     Dosage: 25MCG, ORAL, QD
     Route: 048
     Dates: start: 20240804
  11. BISACODYL [Concomitant]
     Active Substance: BISACODYL
     Indication: Constipation prophylaxis
     Dosage: 10 MG, PRN
     Route: 054
     Dates: start: 20240828
  12. DISODIUM HYDROGEN CITRATE [Concomitant]
     Active Substance: DISODIUM HYDROGEN CITRATE
     Indication: Constipation prophylaxis
     Dosage: 5ML, PRN
     Route: 054
     Dates: start: 20241016
  13. OXAZEPAM [Concomitant]
     Active Substance: OXAZEPAM
     Indication: Anxiety
     Dosage: 10 MG, ORAL, PRN
     Route: 048
     Dates: start: 20240919
  14. ACETAMINOPHEN [Concomitant]
     Active Substance: ACETAMINOPHEN
     Indication: Pain prophylaxis
     Dosage: 1000 MG, INTRAVENOUS DRIP, FOUR TIMES A DAY (QID)
     Route: 042
     Dates: start: 20240803
  15. METOCLOPRAMIDE [Concomitant]
     Active Substance: METOCLOPRAMIDE
     Indication: Prophylaxis of nausea and vomiting
     Dosage: 5 MG, INTRAVENOUS DRIP, THREE TIMES A?DAY (TID)
     Route: 042
     Dates: start: 20240930
  16. POTASSIUM CHLORIDE [Concomitant]
     Active Substance: POTASSIUM CHLORIDE
     Indication: Hypokalaemia
     Dosage: 1200 MG, ORAL, TWICE A DAY (BID)
     Route: 048
     Dates: start: 20241029
  17. NADROPARIN [Concomitant]
     Active Substance: NADROPARIN
     Indication: Thrombosis prophylaxis
     Dosage: 2850 IU, QD
     Route: 058
     Dates: start: 20241016, end: 20241021
  18. LIDOCAINE [Concomitant]
     Active Substance: LIDOCAINE
     Indication: Radiation oesophagitis
     Dosage: 5ML, ORAL, PRN,
     Route: 048
     Dates: start: 20240903
  19. CIPROFLOXACIN [Concomitant]
     Active Substance: CIPROFLOXACIN
     Indication: Urinary tract infection
     Dosage: 500MG, ORAL, BID
     Route: 048
     Dates: start: 20241018, end: 20241029
  20. THIAMINE [Concomitant]
     Active Substance: THIAMINE
     Indication: Vitamin B complex deficiency
     Dosage: 100 MG, ORAL, QD
     Route: 048
     Dates: start: 20241102, end: 20241102
  21. ERYTHROMYCIN [Concomitant]
     Active Substance: ERYTHROMYCIN
     Indication: C-reactive protein decreased
     Dosage: 250 MG, ORAL, TID,
     Route: 048
     Dates: start: 20241101, end: 20241107
  22. PRUCALOPRIDE [Concomitant]
     Active Substance: PRUCALOPRIDE
     Indication: Constipation
     Dosage: 2 MG, ORAL, ONCE
     Route: 048
     Dates: start: 20241101

REACTIONS (2)
  - Intestinal perforation [Fatal]
  - Impaired gastric emptying [Not Recovered/Not Resolved]

NARRATIVE: CASE EVENT DATE: 20241101
